FAERS Safety Report 7308914-X (Version None)
Quarter: 2011Q1

REPORT INFORMATION
  Report Type: 
  Country: None (occurrence: None)
  Receive Date: 20110223
  Receipt Date: 20100315
  Transmission Date: 20110831
  Serious: Yes (Other)
  Sender: FDA-Public Use
  Company Number: US-NOVOPROD-305832

PATIENT

DRUGS (1)
  1. NOVOSEVEN [Suspect]
     Indication: INJURY

REACTIONS (1)
  - EMBOLISM VENOUS [None]
